FAERS Safety Report 15213646 (Version 1)
Quarter: 2018Q3

REPORT INFORMATION
  Report Type: Report from Study
  Country: US (occurrence: US)
  Receive Date: 20180730
  Receipt Date: 20180730
  Transmission Date: 20181010
  Serious: Yes (Other)
  Sender: FDA-Public Use
  Company Number: US-ROCHE-2158912

PATIENT
  Age: 64 Year
  Sex: Female
  Weight: 97.5 kg

DRUGS (5)
  1. ATEZOLIZUMAB. [Suspect]
     Active Substance: ATEZOLIZUMAB
     Indication: ADENOCARCINOMA OF COLON
     Dosage: FOR CYCLES 1?25 (CYCLE = 14 DAYS)?MOST RECENT DOSE OF ATEZOLIZUMAB PRIOR TO THE ONSET OF NEUTROPHIL
     Route: 042
     Dates: start: 20180423
  2. 5?FLUOROURACIL [Suspect]
     Active Substance: FLUOROURACIL
     Dosage: FOR CYCLES 1?12 (CYCLE = 14 DAYS)
     Route: 041
     Dates: start: 20180423
  3. 5?FLUOROURACIL [Suspect]
     Active Substance: FLUOROURACIL
     Indication: ADENOCARCINOMA OF COLON
     Dosage: FOR CYCLES 1?12 (CYCLE = 14 DAYS)?MOST RECENT DOSE OF 5?FLUOROURACIL PRIOR TO THE ONSET OF NEUTROPHI
     Route: 040
     Dates: start: 20180423
  4. OXALIPLATIN. [Suspect]
     Active Substance: OXALIPLATIN
     Indication: ADENOCARCINOMA OF COLON
     Dosage: FOR CYCLES 1?12 (CYCLE = 14 DAYS)?MOST RECENT DOSE OF ATEZOLIZUMAB PRIOR TO THE ONSET OF NEUTROPHIL
     Route: 042
     Dates: start: 20180423
  5. LEUCOVORIN CALCIUM. [Suspect]
     Active Substance: LEUCOVORIN CALCIUM
     Indication: ADENOCARCINOMA OF COLON
     Dosage: FOR CYCLES 1?12 (CYCLE = 14 DAYS)?MOST RECENT DOSE OF ATEZOLIZUMAB PRIOR TO THE ONSET OF NEUTROPHIL
     Route: 042
     Dates: start: 20180423

REACTIONS (2)
  - Hypokalaemia [Recovered/Resolved with Sequelae]
  - Neutrophil count decreased [Recovered/Resolved with Sequelae]

NARRATIVE: CASE EVENT DATE: 20180628
